FAERS Safety Report 23977244 (Version 1)
Quarter: 2024Q2

REPORT INFORMATION
  Report Type: Spontaneous
  Country: FR (occurrence: FR)
  Receive Date: 20240614
  Receipt Date: 20240614
  Transmission Date: 20240716
  Serious: Yes (Life-Threatening, Other)
  Sender: FDA-Public Use
  Company Number: None

PATIENT
  Age: 72 Year
  Sex: Female
  Weight: 47 kg

DRUGS (5)
  1. PACLITAXEL [Suspect]
     Active Substance: PACLITAXEL
     Indication: Chemotherapy
     Dosage: 90 MG 2 TIMES BY CYCLE?C2D1
     Route: 042
     Dates: start: 20240304, end: 20240325
  2. CARBOPLATIN [Suspect]
     Active Substance: CARBOPLATIN
     Indication: Chemotherapy
     Dosage: 280 MG ONE BY CYCLE?C2J1?FOA: 1FP
     Route: 042
     Dates: start: 20240304, end: 20240325
  3. POLARAMINE [Concomitant]
     Active Substance: DEXCHLORPHENIRAMINE MALEATE
     Indication: Chemotherapy side effect prophylaxis
     Dosage: 5 MG ONCE BY DAY??C2J1
     Route: 042
     Dates: start: 20240325, end: 20240325
  4. ONDANSETRON [Concomitant]
     Active Substance: ONDANSETRON
     Indication: Chemotherapy side effect prophylaxis
     Dosage: DOSAGE UNKNOWN?FOA_ 1FP?C2J1
     Route: 042
  5. ONDANSETRON MYLAN 8 mg, orodispersible tablet [Concomitant]
     Indication: Chemotherapy side effect prophylaxis
     Dosage: 8 G 1G PER DAY?FOA: 1 FP?C2J1
     Route: 042
     Dates: start: 20240325, end: 20240325

REACTIONS (6)
  - Type I hypersensitivity [Recovered/Resolved]
  - Hypotension [Recovered/Resolved]
  - Oxygen saturation decreased [Recovered/Resolved]
  - Tachycardia [Recovered/Resolved]
  - Chest discomfort [Recovered/Resolved]
  - Tremor [Recovered/Resolved]

NARRATIVE: CASE EVENT DATE: 20240325
